FAERS Safety Report 11340890 (Version 1)
Quarter: 2015Q3

REPORT INFORMATION
  Report Type: Spontaneous
  Country: US (occurrence: None)
  Receive Date: 20150803
  Receipt Date: 20150803
  Transmission Date: 20151125
  Serious: Yes (Other)
  Sender: FDA-Public Use
  Company Number: None

PATIENT
  Age: 68 Year
  Sex: Male

DRUGS (1)
  1. ADRUCIL [Suspect]
     Active Substance: FLUOROURACIL
     Indication: COLORECTAL CANCER
     Dates: start: 20141105, end: 20150429

REACTIONS (5)
  - Wheezing [None]
  - Product quality issue [None]
  - Dyspnoea [None]
  - Productive cough [None]
  - Chest pain [None]

NARRATIVE: CASE EVENT DATE: 20150429
